FAERS Safety Report 15133985 (Version 4)
Quarter: 2021Q1

REPORT INFORMATION
  Report Type: Report from Study
  Country: US (occurrence: US)
  Receive Date: 20180712
  Receipt Date: 20210303
  Transmission Date: 20210419
  Serious: Yes (Other)
  Sender: FDA-Public Use
  Company Number: US-SA-2018SA179862

PATIENT
  Age: 49 Year
  Sex: Female

DRUGS (6)
  1. VITAMIN D NOS [Concomitant]
     Active Substance: VITAMIN D NOS
  2. AUBAGIO [Suspect]
     Active Substance: TERIFLUNOMIDE
     Dosage: 14 DF, QD
     Route: 048
     Dates: start: 2015
  3. MAGNESIUM [Concomitant]
     Active Substance: MAGNESIUM
  4. AUBAGIO [Suspect]
     Active Substance: TERIFLUNOMIDE
     Indication: MULTIPLE SCLEROSIS
     Dosage: 14 MG, QD
     Route: 048
     Dates: start: 2014
  5. COLLAGEN [Concomitant]
     Active Substance: COLLAGEN
  6. CALCIUM [Concomitant]
     Active Substance: CALCIUM

REACTIONS (4)
  - Sleep disorder [Unknown]
  - Hypertension [Unknown]
  - Hypoaesthesia [Unknown]
  - Hemiparesis [Unknown]

NARRATIVE: CASE EVENT DATE: 201902
